FAERS Safety Report 11928398 (Version 1)
Quarter: 2016Q1

REPORT INFORMATION
  Report Type: Spontaneous
  Country: US (occurrence: US)
  Receive Date: 20160119
  Receipt Date: 20160119
  Transmission Date: 20160526
  Serious: Yes (Hospitalization)
  Sender: FDA-Public Use
  Company Number: US-IMPAX LABORATORIES, INC-2016-IPXL-00018

PATIENT
  Age: 18 Month
  Sex: Female

DRUGS (4)
  1. CLOBAZAM [Concomitant]
     Active Substance: CLOBAZAM
     Indication: GENERALISED TONIC-CLONIC SEIZURE
     Dosage: (0.75 MG/KG/DAY DIVIDED TWICE DAILY)
     Route: 065
  2. TOPIRAMATE. [Concomitant]
     Active Substance: TOPIRAMATE
     Indication: GENERALISED TONIC-CLONIC SEIZURE
     Dosage: (2.5 MG/KG/DAY DIVIDED TWICE DAILY)
     Route: 065
  3. LEVETIRACETAM. [Concomitant]
     Active Substance: LEVETIRACETAM
     Indication: GENERALISED TONIC-CLONIC SEIZURE
     Dosage: UNK
     Route: 065
  4. DIVALPROEX SODIUM ER [Suspect]
     Active Substance: DIVALPROEX SODIUM
     Indication: GENERALISED TONIC-CLONIC SEIZURE
     Dosage: (20 MG/KG/DAY DIVIDED TWICE DAILY)
     Route: 065

REACTIONS (8)
  - Parainfluenzae virus infection [Unknown]
  - Hepatic function abnormal [Recovered/Resolved]
  - Hypoglycaemia [Recovered/Resolved]
  - Seizure [Unknown]
  - Cyanosis [Unknown]
  - Pneumonia [Unknown]
  - Ammonia increased [Unknown]
  - Hypotonia [Unknown]
